FAERS Safety Report 10976865 (Version 1)
Quarter: 2015Q2

REPORT INFORMATION
  Report Type: Spontaneous
  Country: BR (occurrence: BR)
  Receive Date: 20150401
  Receipt Date: 20150401
  Transmission Date: 20150821
  Serious: Yes (Other)
  Sender: FDA-Public Use
  Company Number: BR-PFIZER INC-2015109056

PATIENT
  Age: 58 Year
  Sex: Female
  Weight: 66 kg

DRUGS (6)
  1. CALCIUM [Concomitant]
     Active Substance: CALCIUM
     Indication: OSTEOPENIA
     Dosage: 1 TABLET A DAY
  2. XALATAN [Suspect]
     Active Substance: LATANOPROST
     Indication: CORNEAL DISORDER
     Dosage: 1 DROP IN EACH EYE ONCE A DAY
     Route: 047
     Dates: start: 2013, end: 2014
  3. XALATAN [Suspect]
     Active Substance: LATANOPROST
     Dosage: 1 DROP IN EACH EYE ONCE A DAY
     Route: 047
     Dates: start: 2014, end: 201503
  4. COMPLEXO SENNA ALMEIDA PRADO 46 [Concomitant]
     Indication: FUNCTIONAL GASTROINTESTINAL DISORDER
  5. OMEGA 3 [Concomitant]
     Active Substance: OMEGA-3 FATTY ACIDS
  6. REFRESH OPTIVE [Concomitant]
     Active Substance: CARBOXYMETHYLCELLULOSE SODIUM\GLYCERIN
     Indication: EYE LUBRICATION THERAPY
     Dosage: 1 DROP IN EACH EYE, 3X/DAY
     Route: 047

REACTIONS (6)
  - Intraocular pressure increased [Unknown]
  - Osteopenia [Unknown]
  - Eye irritation [Unknown]
  - Product use issue [Unknown]
  - Dry eye [Unknown]
  - Intentional product misuse [Recovered/Resolved]

NARRATIVE: CASE EVENT DATE: 2014
